FAERS Safety Report 9650764 (Version 1)
Quarter: 2013Q4

REPORT INFORMATION
  Report Type: Spontaneous
  Country: US (occurrence: None)
  Receive Date: 20131025
  Receipt Date: 20131025
  Transmission Date: 20140711
  Serious: Yes (Other)
  Sender: FDA-Public Use
  Company Number: None

PATIENT
  Age: 78 Year
  Sex: Female

DRUGS (2)
  1. ELMIRON [Suspect]
     Indication: CYSTITIS
     Route: 048
     Dates: start: 20131018
  2. WARFARIN [Suspect]
     Route: 048
     Dates: start: 20131020

REACTIONS (1)
  - Contusion [None]
